FAERS Safety Report 7985486-8 (Version None)
Quarter: 2011Q4

REPORT INFORMATION
  Report Type: 
  Country: None (occurrence: None)
  Receive Date: 20111216
  Receipt Date: 20111214
  Transmission Date: 20120403
  Serious: No
  Sender: FDA-Public Use
  Company Number: FR-ROCHE-1021459

PATIENT
  Age: 23 Year
  Sex: Female

DRUGS (5)
  1. OESTROGEN-PROGESTOGEN, COMBINED [Concomitant]
  2. PEGASYS [Suspect]
     Indication: HEPATITIS C
     Route: 065
     Dates: start: 20111031
  3. INCIVO [Suspect]
     Indication: HEPATITIS C
     Route: 065
     Dates: start: 20111031
  4. COPEGUS [Suspect]
     Indication: HEPATITIS C
     Route: 065
     Dates: start: 20111031
  5. LEVOTHYROXINE SODIUM [Concomitant]

REACTIONS (1)
  - HYPERURICAEMIA [None]
